FAERS Safety Report 18923207 (Version 1)
Quarter: 2021Q1

REPORT INFORMATION
  Report Type: Spontaneous
  Country: DK (occurrence: DK)
  Receive Date: 20210222
  Receipt Date: 20210222
  Transmission Date: 20210420
  Serious: Yes (Hospitalization)
  Sender: FDA-Public Use
  Company Number: NVSC2021DK035895

PATIENT
  Age: 80 Year
  Sex: Female

DRUGS (4)
  1. DICILLIN [Suspect]
     Active Substance: DICLOXACILLIN SODIUM
     Indication: STAPHYLOCOCCAL INFECTION
     Dosage: 3000 MG, QD
     Route: 048
     Dates: start: 20201116, end: 20201123
  2. SEREVENT DISKUS [Concomitant]
     Active Substance: SALMETEROL XINAFOATE
     Indication: LUNG DISORDER
     Dosage: UNK
     Route: 065
     Dates: start: 20140822
  3. VISCOTEARS [Concomitant]
     Active Substance: CARBOMER
     Indication: EYE LUBRICATION THERAPY
     Dosage: UNK
     Route: 065
  4. ZADITEN [Concomitant]
     Active Substance: KETOTIFEN FUMARATE
     Indication: CONJUNCTIVITIS ALLERGIC
     Dosage: UNK
     Route: 065
     Dates: start: 20141204

REACTIONS (3)
  - Pruritus [Unknown]
  - Jaundice [Unknown]
  - Drug-induced liver injury [Recovering/Resolving]

NARRATIVE: CASE EVENT DATE: 202012
